FAERS Safety Report 10788551 (Version 1)
Quarter: 2015Q1

REPORT INFORMATION
  Report Type: Spontaneous
  Country: US (occurrence: US)
  Receive Date: 20150212
  Receipt Date: 20150212
  Transmission Date: 20150721
  Serious: No
  Sender: FDA-Public Use
  Company Number: US-GLAXOSMITHKLINE-A1087330A

PATIENT

DRUGS (4)
  1. FLONASE [Suspect]
     Active Substance: FLUTICASONE PROPIONATE
     Indication: PRODUCT USED FOR UNKNOWN INDICATION
     Dosage: 50 MCG
     Route: 065
     Dates: start: 20110314
  2. REQUIP [Suspect]
     Active Substance: ROPINIROLE HYDROCHLORIDE
     Indication: PRODUCT USED FOR UNKNOWN INDICATION
     Dosage: 1 MG
     Route: 065
     Dates: start: 20080924
  3. VENTOLIN [Suspect]
     Active Substance: ALBUTEROL SULFATE
     Indication: HYPERSENSITIVITY
     Dosage: 90 MCG
     Route: 065
     Dates: start: 19980101
  4. FLOVENT [Suspect]
     Active Substance: FLUTICASONE PROPIONATE
     Indication: PRODUCT USED FOR UNKNOWN INDICATION
     Dosage: 110 MCG
     Route: 065
     Dates: start: 20130926

REACTIONS (2)
  - Drug ineffective [Unknown]
  - Migraine [Unknown]
